FAERS Safety Report 15947986 (Version 4)
Quarter: 2020Q4

REPORT INFORMATION
  Report Type: Spontaneous
  Country: GB (occurrence: GB)
  Receive Date: 20190211
  Receipt Date: 20201225
  Transmission Date: 20210113
  Serious: Yes (Hospitalization)
  Sender: FDA-Public Use
  Company Number: PHHY2019GB027488

PATIENT
  Age: 67 Year
  Sex: Female

DRUGS (17)
  1. CYCLIZINE [Concomitant]
     Active Substance: CYCLIZINE
     Indication: PRODUCT USED FOR UNKNOWN INDICATION
     Dosage: UNK
     Route: 065
  2. LOPERAMIDE HYDROCHLORIDE. [Concomitant]
     Active Substance: LOPERAMIDE HYDROCHLORIDE
     Indication: PRODUCT USED FOR UNKNOWN INDICATION
     Dosage: 2 MG
     Route: 048
     Dates: start: 20151015
  3. PERTUZUMAB. [Suspect]
     Active Substance: PERTUZUMAB
     Dosage: 420 MG, TIW (MAINTENANCE DOSEMOST RECENT DOSE PRIOR TO SAE)
     Route: 042
     Dates: start: 20151102
  4. DESUNIN [Concomitant]
     Active Substance: CHOLECALCIFEROL
     Dosage: 1 QD
     Route: 048
     Dates: start: 20170203
  5. ZOLEDRONATE [Concomitant]
     Active Substance: ZOLEDRONIC ACID
     Indication: OSTEOPOROSIS
     Dosage: 5 MG (6 MIN)
     Route: 042
     Dates: start: 20170203
  6. PACLITAXEL. [Suspect]
     Active Substance: PACLITAXEL
     Indication: BREAST CANCER METASTATIC
     Dosage: 140 MG
     Route: 042
     Dates: start: 20151125, end: 20160302
  7. RISEDRONATE [Concomitant]
     Active Substance: RISEDRONATE SODIUM
     Indication: PROPHYLAXIS
     Dosage: 35 G
     Route: 048
     Dates: start: 20101007, end: 20160807
  8. TRASTUZUMAB. [Suspect]
     Active Substance: TRASTUZUMAB
     Indication: BREAST CANCER METASTATIC
     Dosage: 620 MG, (LOADING DOSE MOST RECENT DOSE PRIOR TO SAE)
     Route: 042
     Dates: start: 20151012
  9. PERTUZUMAB. [Suspect]
     Active Substance: PERTUZUMAB
     Indication: BREAST CANCER METASTATIC
     Dosage: 840 MG (LOADING DOSE)
     Route: 042
     Dates: start: 20151012
  10. DESUNIN [Concomitant]
     Active Substance: CHOLECALCIFEROL
     Indication: OSTEOPOROSIS
     Dosage: 800 IU, QD
     Route: 048
     Dates: start: 20160821, end: 201611
  11. RISEDRONIC ACID [Concomitant]
     Active Substance: RISEDRONIC ACID
     Indication: PRODUCT USED FOR UNKNOWN INDICATION
     Dosage: 35 G
     Route: 048
  12. PARACETAMOL [Concomitant]
     Active Substance: ACETAMINOPHEN
     Indication: PRODUCT USED FOR UNKNOWN INDICATION
     Dosage: 500 MG (PRE MEDICATION)
     Route: 048
     Dates: start: 20151012
  13. DEXAMETHASONE. [Concomitant]
     Active Substance: DEXAMETHASONE
     Indication: PRODUCT USED FOR UNKNOWN INDICATION
     Dosage: UNK
     Route: 065
  14. DOCETAXEL. [Suspect]
     Active Substance: DOCETAXEL
     Indication: BREAST CANCER METASTATIC
     Dosage: 130 MG, Q3W
     Route: 042
     Dates: start: 20151013, end: 20151013
  15. TRASTUZUMAB. [Suspect]
     Active Substance: TRASTUZUMAB
     Dosage: 6 MG/KG, TIW (MAINTENANCE DOSE)
     Route: 042
     Dates: start: 20151102
  16. ALENDRONIC ACID [Concomitant]
     Active Substance: ALENDRONIC ACID
     Indication: OSTEOPOROSIS
     Dosage: 70 MG, QW
     Route: 065
     Dates: start: 20160821, end: 201611
  17. ADCAL D3 [Concomitant]
     Active Substance: CALCIUM CARBONATE\CHOLECALCIFEROL
     Indication: PROPHYLAXIS
     Dosage: 1.5 G
     Route: 048
     Dates: start: 20101007

REACTIONS (13)
  - Neuropathy peripheral [Recovered/Resolved]
  - Mouth ulceration [Recovered/Resolved]
  - Lower respiratory tract infection [Recovered/Resolved]
  - Mouth ulceration [Recovered/Resolved]
  - Rib fracture [Recovered/Resolved]
  - Mouth ulceration [Recovered/Resolved]
  - Febrile neutropenia [Recovered/Resolved]
  - Rash [Recovered/Resolved]
  - Appendicitis [Recovered/Resolved]
  - Musculoskeletal chest pain [Not Recovered/Not Resolved]
  - Lower respiratory tract infection [Recovered/Resolved]
  - Urinary tract infection [Recovered/Resolved]
  - Lower respiratory tract infection [Recovered/Resolved]

NARRATIVE: CASE EVENT DATE: 20151021
